FAERS Safety Report 7369123-1 (Version None)
Quarter: 2011Q1

REPORT INFORMATION
  Report Type: 
  Country: None (occurrence: None)
  Receive Date: 20110309
  Receipt Date: 20110228
  Transmission Date: 20110831
  Serious: Yes (Other)
  Sender: FDA-Public Use
  Company Number: 2011SP009320

PATIENT
  Age: 40 Year
  Sex: Female

DRUGS (5)
  1. SIMVASTATIN [Concomitant]
  2. SAPHRIS [Suspect]
     Indication: DEPRESSION
     Dosage: 5 MG;QD;SL
     Route: 060
     Dates: start: 20110223, end: 20110225
  3. LISINOPRIL [Concomitant]
  4. ZOLOFT [Concomitant]
  5. IBUPROFEN [Concomitant]

REACTIONS (5)
  - LOCAL SWELLING [None]
  - SWELLING FACE [None]
  - TONGUE ULCERATION [None]
  - DYSPHAGIA [None]
  - SWOLLEN TONGUE [None]
